FAERS Safety Report 23568865 (Version 1)
Quarter: 2024Q1

REPORT INFORMATION
  Report Type: Report from Study
  Country: DE (occurrence: DE)
  Receive Date: 20240227
  Receipt Date: 20240227
  Transmission Date: 20240409
  Serious: Yes (Hospitalization)
  Sender: FDA-Public Use
  Company Number: DE-Merck Healthcare KGaA-2024006606

PATIENT
  Age: 52 Year
  Sex: Female
  Weight: 130 kg

DRUGS (6)
  1. CLADRIBINE [Suspect]
     Active Substance: CLADRIBINE
     Indication: Product used for unknown indication
     Dosage: YEAR ONE THERAPY
  2. CLADRIBINE [Suspect]
     Active Substance: CLADRIBINE
     Dosage: YEAR TWO THERAPY.
  3. CLADRIBINE [Suspect]
     Active Substance: CLADRIBINE
     Dosage: YEAR THREE THERAPY.
  4. CLADRIBINE [Suspect]
     Active Substance: CLADRIBINE
     Dosage: YEAR FOUR THERAPY.
  5. CLADRIBINE [Suspect]
     Active Substance: CLADRIBINE
     Dosage: YEAR FIVE WEEK ONE THERAPY
     Dates: start: 20230331, end: 20230404
  6. CLADRIBINE [Suspect]
     Active Substance: CLADRIBINE
     Dosage: YEAR FIVE WEEK TWO THERAPY.
     Dates: start: 20230427, end: 20230501

REACTIONS (2)
  - Endometrial cancer [Unknown]
  - Lymphopenia [Recovered/Resolved]

NARRATIVE: CASE EVENT DATE: 20230525
